FAERS Safety Report 5221637-6 (Version None)
Quarter: 2007Q1

REPORT INFORMATION
  Report Type: 
  Country: None (occurrence: None)
  Receive Date: 20070129
  Receipt Date: 20070116
  Transmission Date: 20070707
  Serious: Yes (Hospitalization)
  Sender: FDA-Public Use
  Company Number: PHRM2007FR00549

PATIENT
  Age: 48 Year
  Sex: Female

DRUGS (5)
  1. ZOMETA [Suspect]
     Indication: METASTASES TO BONE
     Dates: start: 20030101, end: 20030101
  2. ZOMETA [Suspect]
     Dates: start: 20050101, end: 20050101
  3. ZOMETA [Suspect]
     Dosage: 4 MG, UNK
     Dates: start: 20050615, end: 20051115
  4. AREDIA [Suspect]
     Indication: METASTASES TO BONE
     Dates: start: 20030101, end: 20030101
  5. CLASTOBAN [Concomitant]
     Indication: METASTASES TO BONE
     Dosage: 800 MG, BID
     Route: 048
     Dates: start: 20040715, end: 20050115

REACTIONS (4)
  - OSTEONECROSIS [None]
  - PERIODONTAL DISEASE [None]
  - TOOTH EXTRACTION [None]
  - TOOTHACHE [None]
